FAERS Safety Report 8004957-1 (Version None)
Quarter: 2011Q4

REPORT INFORMATION
  Report Type: 
  Country: None (occurrence: None)
  Receive Date: 20111223
  Receipt Date: 20111216
  Transmission Date: 20120403
  Serious: Yes (Other)
  Sender: FDA-Public Use
  Company Number: NL-JNJFOC-20111112404

PATIENT
  Age: 54 Year
  Sex: Male
  Weight: 120 kg

DRUGS (1)
  1. STELARA [Suspect]
     Indication: PRODUCT USED FOR UNKNOWN INDICATION
     Route: 058

REACTIONS (4)
  - DEPRESSION [None]
  - FATIGUE [None]
  - DRUG EFFECT DECREASED [None]
  - WEIGHT INCREASED [None]
